FAERS Safety Report 5505917-2 (Version None)
Quarter: 2007Q4

REPORT INFORMATION
  Report Type: 
  Country: None (occurrence: None)
  Receive Date: 20071102
  Receipt Date: 20071022
  Transmission Date: 20080405
  Serious: Yes (Death)
  Sender: FDA-Public Use
  Company Number: JP-PFIZER INC-2007090667

PATIENT
  Age: 75 Year
  Sex: Female

DRUGS (2)
  1. IRINOTECAN HCL [Suspect]
     Indication: NON-SMALL CELL LUNG CANCER
     Dosage: DAILY DOSE:20MG
     Route: 042
     Dates: start: 20071002, end: 20071016
  2. IRINOTECAN HCL [Suspect]
     Dosage: DAILY DOSE:10MG
     Route: 042
     Dates: start: 20071017, end: 20071017

REACTIONS (3)
  - DIARRHOEA [None]
  - LEUKOPENIA [None]
  - SHOCK [None]
